FAERS Safety Report 7585507-0 (Version None)
Quarter: 2011Q2

REPORT INFORMATION
  Report Type: 
  Country: None (occurrence: None)
  Receive Date: 20110628
  Receipt Date: 20110628
  Transmission Date: 20111010
  Serious: Yes (Other)
  Sender: FDA-Public Use
  Company Number: None

PATIENT
  Sex: Female
  Weight: 84.1 kg

DRUGS (1)
  1. ACTOS [Suspect]

REACTIONS (1)
  - BLADDER CANCER RECURRENT [None]
